FAERS Safety Report 9643252 (Version 2)
Quarter: 2013Q4

REPORT INFORMATION
  Report Type: Spontaneous
  Country: US (occurrence: US)
  Receive Date: 20131024
  Receipt Date: 20131024
  Transmission Date: 20140711
  Serious: Yes (Other)
  Sender: FDA-Public Use
  Company Number: ALCN2013US005128

PATIENT
  Sex: 0

DRUGS (1)
  1. ICAPS AREDS [Suspect]
     Indication: MEDICAL DIET
     Dosage: 4 UNK, QD
     Route: 048

REACTIONS (3)
  - Confusional state [Unknown]
  - Myalgia [Unknown]
  - Medication error [Unknown]
